FAERS Safety Report 11428006 (Version 1)
Quarter: 2015Q3

REPORT INFORMATION
  Report Type: Spontaneous
  Country: US (occurrence: None)
  Receive Date: 20150827
  Receipt Date: 20150827
  Transmission Date: 20151125
  Serious: No
  Sender: FDA-Public Use
  Company Number: None

PATIENT
  Sex: Male

DRUGS (1)
  1. METOPOLOL TAR [Suspect]
     Active Substance: METOPROLOL TARTRATE
     Indication: HYPERTENSION
     Dosage: 2 PILLS ONE MORNING ?ONE NIGHT CUT IN HALF PER DOCTOR 8/1/2015
     Dates: end: 20150801

REACTIONS (4)
  - Asthenia [None]
  - Feeling drunk [None]
  - Activities of daily living impaired [None]
  - Dizziness [None]
